FAERS Safety Report 19641221 (Version 2)
Quarter: 2022Q3

REPORT INFORMATION
  Report Type: Spontaneous
  Country: NO (occurrence: NO)
  Receive Date: 20210729
  Receipt Date: 20220817
  Transmission Date: 20221027
  Serious: Yes (Life-Threatening, Other)
  Sender: FDA-Public Use
  Company Number: None

PATIENT
  Sex: Female

DRUGS (6)
  1. SEVOFLURANE [Suspect]
     Active Substance: SEVOFLURANE
     Indication: Anaesthesia
     Dosage: STRENGTH: 100% PRN
     Route: 064
     Dates: start: 20210623, end: 20210624
  2. SEVOFLURANE [Suspect]
     Active Substance: SEVOFLURANE
     Indication: Caesarean section
  3. ROCURONIUM BROMIDE [Suspect]
     Active Substance: ROCURONIUM BROMIDE
     Indication: Anaesthesia
     Dosage: 50 MG PRN, 2 DOSES GIVEN WITH 30 MIN APART
     Route: 064
     Dates: start: 20210623, end: 20210623
  4. ROCURONIUM BROMIDE [Suspect]
     Active Substance: ROCURONIUM BROMIDE
     Indication: Caesarean section
  5. SUCCINYLCHOLINE CHLORIDE DIHYDRATE [Suspect]
     Active Substance: SUCCINYLCHOLINE CHLORIDE DIHYDRATE
     Indication: Caesarean section
     Dosage: 100 MILLIGRAM, PRN
     Route: 064
     Dates: start: 20210623, end: 20210623
  6. SUCCINYLCHOLINE CHLORIDE DIHYDRATE [Suspect]
     Active Substance: SUCCINYLCHOLINE CHLORIDE DIHYDRATE
     Indication: Anaesthesia

REACTIONS (3)
  - Respiratory arrest [Unknown]
  - Foetal exposure during pregnancy [Unknown]
  - Cardiac arrest [Unknown]

NARRATIVE: CASE EVENT DATE: 20210623
